FAERS Safety Report 8990847 (Version 2)
Quarter: 2013Q3

REPORT INFORMATION
  Report Type: Report from Study
  Country: DE (occurrence: DE)
  Receive Date: 20121231
  Receipt Date: 20130802
  Transmission Date: 20140515
  Serious: Yes (Hospitalization)
  Sender: FDA-Public Use
  Company Number: PHHO2012DE018572

PATIENT
  Age: 73 Year
  Sex: Female
  Weight: 60 kg

DRUGS (3)
  1. EVEROLIMUS [Suspect]
     Indication: BREAST CANCER METASTATIC
     Dosage: 5 MG, UNK
     Route: 048
     Dates: start: 20121105, end: 20121227
  2. EVEROLIMUS [Suspect]
     Dosage: 5 MG, UNK
     Route: 048
     Dates: start: 20130118
  3. EXEMESTANE [Suspect]
     Indication: BREAST CANCER
     Dosage: 25 MG, UNK
     Route: 048
     Dates: start: 20120912

REACTIONS (1)
  - Jaundice [Recovered/Resolved]
